FAERS Safety Report 4964527-6 (Version None)
Quarter: 2006Q2

REPORT INFORMATION
  Report Type: 
  Country: None (occurrence: None)
  Receive Date: 20060406
  Receipt Date: 20051205
  Transmission Date: 20061013
  Serious: Yes (Hospitalization)
  Sender: FDA-Public Use
  Company Number: ZW-GLAXOSMITHKLINE-B0402732A

PATIENT
  Age: 31 Year
  Sex: Male

DRUGS (3)
  1. COMBIVIR [Suspect]
     Indication: HIV INFECTION
     Dosage: 1TAB TWICE PER DAY
     Route: 048
     Dates: start: 20031209, end: 20051130
  2. TENOFOVIR [Suspect]
     Indication: HIV INFECTION
     Dosage: 300MG PER DAY
     Route: 048
     Dates: start: 20031209
  3. CO-TRIMOXAZOLE [Suspect]
     Dosage: 960MG PER DAY
     Route: 048
     Dates: start: 20031125

REACTIONS (5)
  - ABDOMINAL PAIN [None]
  - CHILLS [None]
  - COUGH [None]
  - NEUTROPENIC SEPSIS [None]
  - PYREXIA [None]
